FAERS Safety Report 4387255-7 (Version None)
Quarter: 2004Q2

REPORT INFORMATION
  Report Type: 
  Country: None (occurrence: None)
  Receive Date: 20040630
  Receipt Date: 20040331
  Transmission Date: 20050107
  Serious: No
  Sender: FDA-Public Use
  Company Number: US-GLAXOSMITHKLINE-A0505373A

PATIENT
  Age: 67 Year
  Sex: Female

DRUGS (5)
  1. ADVAIR HFA [Suspect]
     Dosage: 1PUFF PER DAY
     Route: 055
     Dates: end: 20040310
  2. SINGULAIR [Concomitant]
  3. FLONASE [Concomitant]
  4. ARIMIDEX [Concomitant]
  5. COMBIVENT [Concomitant]

REACTIONS (1)
  - LARYNGITIS [None]
